FAERS Safety Report 6400153-X (Version None)
Quarter: 2009Q4

REPORT INFORMATION
  Report Type: 
  Country: None (occurrence: None)
  Receive Date: 20091014
  Receipt Date: 20091003
  Transmission Date: 20100525
  Serious: Yes (Other)
  Sender: FDA-Public Use
  Company Number: TR-BAXTER-2009BH015145

PATIENT
  Age: 30 Year
  Sex: Female

DRUGS (3)
  1. HEPARIN [Suspect]
     Indication: PROPHYLAXIS
     Route: 042
  2. HEPARIN [Suspect]
     Route: 042
  3. WARFARIN SODIUM [Concomitant]
     Indication: PROPHYLAXIS
     Route: 065

REACTIONS (2)
  - DRUG EXPOSURE DURING PREGNANCY [None]
  - THROMBOSIS [None]
